FAERS Safety Report 25205214 (Version 1)
Quarter: 2025Q2

REPORT INFORMATION
  Report Type: Spontaneous
  Country: US (occurrence: US)
  Receive Date: 20250417
  Receipt Date: 20250417
  Transmission Date: 20250716
  Serious: No
  Sender: SANOFI AVENTIS
  Company Number: US-SA-2025SA109031

PATIENT
  Sex: Female

DRUGS (18)
  1. DUPIXENT [Suspect]
     Active Substance: DUPILUMAB
     Indication: Asthma
     Dosage: 300 MG, QOW
     Route: 058
  2. LEVOFLOXACIN [Concomitant]
     Active Substance: LEVOFLOXACIN
  3. PREDNISONE [Concomitant]
     Active Substance: PREDNISONE
  4. TRELEGY ELLIPTA [Concomitant]
     Active Substance: FLUTICASONE FUROATE\UMECLIDINIUM BROMIDE\VILANTEROL TRIFENATATE
  5. VITAMIN B12 [Concomitant]
     Active Substance: CYANOCOBALAMIN
  6. VITAMIN D3 [Concomitant]
     Active Substance: CHOLECALCIFEROL
  7. XYZAL ALLERGY 24HR [Concomitant]
     Active Substance: LEVOCETIRIZINE DIHYDROCHLORIDE
  8. ZINC [Concomitant]
     Active Substance: ZINC
  9. BREO ELLIPTA [Concomitant]
     Active Substance: FLUTICASONE FUROATE\VILANTEROL TRIFENATATE
  10. DIVALPROEX SODIUM [Concomitant]
     Active Substance: DIVALPROEX SODIUM
  11. ESCITALOPRAM [Concomitant]
     Active Substance: ESCITALOPRAM OXALATE
  12. DIETARY SUPPLEMENT\HERBALS\MILK THISTLE [Concomitant]
     Active Substance: MILK THISTLE
  13. VITAMINS [Concomitant]
     Active Substance: VITAMINS
  14. PROTONIX [Concomitant]
     Active Substance: PANTOPRAZOLE SODIUM
  15. SINGULAIR [Concomitant]
     Active Substance: MONTELUKAST SODIUM
  16. HERBALS\TURMERIC [Concomitant]
     Active Substance: HERBALS\TURMERIC
  17. VENTOLIN HFA [Concomitant]
     Active Substance: ALBUTEROL SULFATE
  18. DIVALPROEX SODIUM [Concomitant]
     Active Substance: DIVALPROEX SODIUM

REACTIONS (7)
  - Dry eye [Unknown]
  - Injection site pain [Unknown]
  - Chronic obstructive pulmonary disease [Unknown]
  - Insomnia [Unknown]
  - Asthma [Unknown]
  - Fatigue [Unknown]
  - Nausea [Unknown]
